FAERS Safety Report 14189263 (Version 3)
Quarter: 2017Q4

REPORT INFORMATION
  Report Type: Spontaneous
  Country: JP (occurrence: JP)
  Receive Date: 20171115
  Receipt Date: 20171204
  Transmission Date: 20180321
  Serious: Yes (Death, Life-Threatening, Hospitalization, Other)
  Sender: FDA-Public Use
  Company Number: JP-009507513-1711JPN000473J

PATIENT
  Age: 48 Year
  Sex: Male

DRUGS (1)
  1. KEYTRUDA [Suspect]
     Active Substance: PEMBROLIZUMAB
     Indication: NON-SMALL CELL LUNG CANCER
     Dosage: 200 MG, Q3W
     Route: 041
     Dates: start: 20171002

REACTIONS (6)
  - Rhabdomyolysis [Not Recovered/Not Resolved]
  - Pyrexia [Recovered/Resolved]
  - Encephalitis [Not Recovered/Not Resolved]
  - Neuroleptic malignant syndrome [Not Recovered/Not Resolved]
  - Renal failure [Fatal]
  - Disseminated intravascular coagulation [Not Recovered/Not Resolved]

NARRATIVE: CASE EVENT DATE: 20171104
